FAERS Safety Report 24996276 (Version 1)
Quarter: 2025Q1

REPORT INFORMATION
  Report Type: Spontaneous
  Country: US (occurrence: US)
  Receive Date: 20250221
  Receipt Date: 20250221
  Transmission Date: 20250409
  Serious: No
  Sender: AUROBINDO
  Company Number: US-AUROBINDO-AUR-APL-2024-062611

PATIENT
  Age: 17 Year
  Sex: Female

DRUGS (1)
  1. ISOTRETINOIN [Suspect]
     Active Substance: ISOTRETINOIN
     Indication: Product used for unknown indication
     Route: 065

REACTIONS (10)
  - Arthralgia [Unknown]
  - Back pain [Unknown]
  - Depression [Unknown]
  - Dry skin [Unknown]
  - Dyspepsia [Unknown]
  - Epistaxis [Unknown]
  - Headache [Unknown]
  - Lip dry [Unknown]
  - Mood altered [Unknown]
  - Myalgia [Unknown]

NARRATIVE: CASE EVENT DATE: 20241209
